FAERS Safety Report 5874763-2 (Version None)
Quarter: 2008Q3

REPORT INFORMATION
  Report Type: 
  Country: None (occurrence: None)
  Receive Date: 20080908
  Receipt Date: 20080908
  Transmission Date: 20090109
  Serious: Yes (Life-Threatening, Hospitalization)
  Sender: FDA-Public Use
  Company Number: None

PATIENT
  Sex: Female

DRUGS (1)
  1. METHADONE HCL [Suspect]

REACTIONS (2)
  - ACCIDENTAL OVERDOSE [None]
  - UNRESPONSIVE TO STIMULI [None]
